FAERS Safety Report 8716482 (Version 2)
Quarter: 2013Q4

REPORT INFORMATION
  Report Type: Spontaneous
  Country: US (occurrence: US)
  Receive Date: 20120810
  Receipt Date: 20131101
  Transmission Date: 20140711
  Serious: Yes (Other)
  Sender: FDA-Public Use
  Company Number: US-009507513-1208USA002386

PATIENT
  Sex: Female

DRUGS (6)
  1. ZETIA [Suspect]
     Indication: HYPERCHOLESTEROLAEMIA
     Dosage: 10 MG, QD
     Route: 048
     Dates: start: 20120602, end: 20120611
  2. VITAMIN D (UNSPECIFIED) [Concomitant]
  3. ADVAIR [Concomitant]
  4. VERAMYST [Concomitant]
  5. LEVOTHYROXINE SODIUM [Concomitant]
  6. LORATADINE [Concomitant]

REACTIONS (1)
  - Hepatic enzyme increased [Recovering/Resolving]
